FAERS Safety Report 7012189-9 (Version None)
Quarter: 2010Q3

REPORT INFORMATION
  Report Type: 
  Country: None (occurrence: None)
  Receive Date: 20100924
  Receipt Date: 20100915
  Transmission Date: 20110219
  Serious: Yes (Other)
  Sender: FDA-Public Use
  Company Number: BR-ASTRAZENECA-2010SE43917

PATIENT
  Age: 83 Year
  Sex: Female
  Weight: 65 kg

DRUGS (6)
  1. NEXIUM [Suspect]
     Indication: GASTRITIS
     Route: 048
     Dates: start: 20100909
  2. LOSARTAN POTASSIUM [Concomitant]
     Indication: HYPERTENSION
     Route: 048
     Dates: start: 20050101
  3. FRONTAL [Concomitant]
     Indication: ANXIOLYTIC THERAPY
     Route: 048
     Dates: start: 20070101
  4. LAMITOR [Concomitant]
     Route: 048
     Dates: start: 20040101, end: 20100911
  5. BROMOPIRIN [Concomitant]
     Indication: ANXIOLYTIC THERAPY
     Route: 048
     Dates: start: 20040101, end: 20100911
  6. FRADEMICINA [Concomitant]
     Indication: TRACHEITIS
     Route: 030
     Dates: start: 20100909, end: 20100912

REACTIONS (1)
  - GENERALISED ERYTHEMA [None]
